FAERS Safety Report 5675013-2 (Version None)
Quarter: 2008Q1

REPORT INFORMATION
  Report Type: 
  Country: None (occurrence: None)
  Receive Date: 20080320
  Receipt Date: 20080306
  Transmission Date: 20080703
  Serious: Yes (Disabling, Other)
  Sender: FDA-Public Use
  Company Number: US-BAYER-200816361NA

PATIENT
  Age: 48 Year
  Sex: Male

DRUGS (5)
  1. MAGNEVIST [Suspect]
     Indication: NUCLEAR MAGNETIC RESONANCE IMAGING
     Route: 042
     Dates: start: 20061013
  2. OMNISCAN [Suspect]
     Indication: NUCLEAR MAGNETIC RESONANCE IMAGING
     Route: 042
     Dates: start: 20061013
  3. OPTIMARK [Suspect]
     Indication: NUCLEAR MAGNETIC RESONANCE IMAGING
     Dates: start: 20061013
  4. MULTIHANCE [Suspect]
     Indication: NUCLEAR MAGNETIC RESONANCE IMAGING
     Dates: start: 20061013
  5. PROHANCE [Suspect]
     Dates: start: 20061013

REACTIONS (12)
  - ANHEDONIA [None]
  - ANXIETY [None]
  - BODY DYSMORPHIC DISORDER [None]
  - DEPRESSION [None]
  - DISABILITY [None]
  - EMOTIONAL DISTRESS [None]
  - FIBROSIS [None]
  - INJURY [None]
  - MENTAL DISORDER [None]
  - NEPHROGENIC SYSTEMIC FIBROSIS [None]
  - PAIN [None]
  - UNEVALUABLE EVENT [None]
